FAERS Safety Report 15275061 (Version 3)
Quarter: 2018Q3

REPORT INFORMATION
  Report Type: Spontaneous
  Country: US (occurrence: US)
  Receive Date: 20180814
  Receipt Date: 20180820
  Transmission Date: 20181010
  Serious: No
  Sender: FDA-Public Use
  Company Number: US-PFIZER INC-2018296644

PATIENT
  Age: 66 Year
  Sex: Female
  Weight: 70.3 kg

DRUGS (1)
  1. GABAPENTIN. [Suspect]
     Active Substance: GABAPENTIN
     Indication: NEUROPATHY PERIPHERAL
     Dosage: 800 MG, UNK

REACTIONS (3)
  - Drug ineffective for unapproved indication [Unknown]
  - Expired product administered [Unknown]
  - Constipation [Unknown]
